FAERS Safety Report 5330197-0 (Version None)
Quarter: 2007Q2

REPORT INFORMATION
  Report Type: 
  Country: None (occurrence: None)
  Receive Date: 20070521
  Receipt Date: 20070508
  Transmission Date: 20071010
  Serious: Yes (Life-Threatening)
  Sender: FDA-Public Use
  Company Number: AU-ASTRAZENECA-2007AP02914

PATIENT
  Age: 70 Year
  Sex: Male

DRUGS (7)
  1. PROPOFOL [Suspect]
  2. FENTANYL [Suspect]
  3. CISATRACURIUM BESYLATE [Suspect]
     Dates: start: 20061118
  4. KEFLIN,FROZEN NEUTRAL [Suspect]
  5. HARTMANNS SOLUTION [Suspect]
  6. GELOFUSINE [Suspect]
  7. REMIFENTANIL HYDROCHLORIDE [Suspect]

REACTIONS (7)
  - BLOOD PRESSURE DECREASED [None]
  - HAEMODYNAMIC INSTABILITY [None]
  - LIP SWELLING [None]
  - RASH [None]
  - RASH ERYTHEMATOUS [None]
  - SWELLING [None]
  - SWELLING FACE [None]
